FAERS Safety Report 14161265 (Version 1)
Quarter: 2017Q4

REPORT INFORMATION
  Report Type: Spontaneous
  Country: US (occurrence: US)
  Receive Date: 20171106
  Receipt Date: 20171106
  Transmission Date: 20180321
  Serious: Yes (Other)
  Sender: FDA-Public Use
  Company Number: US-BAYER-2017-212511

PATIENT
  Sex: Female

DRUGS (1)
  1. MIRENA [Suspect]
     Active Substance: LEVONORGESTREL
     Dosage: 20 MCG/24HR, CONT
     Route: 015
     Dates: start: 2015

REACTIONS (5)
  - Pelvic inflammatory disease [Unknown]
  - Impaired work ability [Unknown]
  - Complication associated with device [Unknown]
  - Pelvic inflammatory disease [Recovered/Resolved]
  - Medical device discomfort [Unknown]

NARRATIVE: CASE EVENT DATE: 201707
